FAERS Safety Report 24106944 (Version 1)
Quarter: 2024Q3

REPORT INFORMATION
  Report Type: Report from Study
  Country: CO (occurrence: CO)
  Receive Date: 20240717
  Receipt Date: 20240717
  Transmission Date: 20241017
  Serious: Yes (Hospitalization, Other)
  Sender: ABBVIE
  Company Number: CO-ABBVIE-5841819

PATIENT
  Age: 62 Year
  Sex: Male
  Weight: 63 kg

DRUGS (5)
  1. SKYRIZI [Suspect]
     Active Substance: RISANKIZUMAB-RZAA
     Indication: Psoriasis
     Dosage: FORM STRENGTH: 150 MILLIGRAM
     Route: 058
     Dates: start: 20220712, end: 20240118
  2. CIPROFIBRATE [Concomitant]
     Active Substance: CIPROFIBRATE
     Indication: Prophylaxis
     Dosage: 100 MILLIGRAM
     Route: 048
     Dates: start: 202402
  3. CLOBETASOL [Concomitant]
     Active Substance: CLOBETASOL
     Indication: Skin plaque
     Dosage: UNKNOWN
  4. CLOBEX [Concomitant]
     Active Substance: CLOBETASOL PROPIONATE
     Indication: Skin plaque
     Route: 061
     Dates: start: 202401
  5. Daivobet (Betamethasone dipropionate;Calcipotriol) [Concomitant]
     Indication: Product used for unknown indication
     Dosage: FREQUENCY TEXT: EVERY 2 TO 3 DAYS
     Route: 061

REACTIONS (14)
  - Neoplasm malignant [Recovered/Resolved]
  - Skin plaque [Not Recovered/Not Resolved]
  - Urinary tract infection [Recovered/Resolved]
  - Skin papilloma [Not Recovered/Not Resolved]
  - Skin discolouration [Unknown]
  - Pyrexia [Recovered/Resolved]
  - Decreased appetite [Recovered/Resolved]
  - Skin exfoliation [Not Recovered/Not Resolved]
  - Nausea [Recovered/Resolved]
  - Melanocytic naevus [Recovered/Resolved]
  - Weight decreased [Recovered/Resolved]
  - Laboratory test abnormal [Unknown]
  - Skin plaque [Recovering/Resolving]
  - Skin papilloma [Not Recovered/Not Resolved]

NARRATIVE: CASE EVENT DATE: 20240101
